FAERS Safety Report 17884632 (Version 13)
Quarter: 2021Q2

REPORT INFORMATION
  Report Type: Other
  Country: CA (occurrence: CA)
  Receive Date: 20200611
  Receipt Date: 20210419
  Transmission Date: 20210717
  Serious: Yes (Hospitalization, Other)
  Sender: FDA-Public Use
  Company Number: CA-ROCHE-2102538

PATIENT
  Age: 71 Year
  Sex: Female
  Weight: 100 kg

DRUGS (14)
  1. PAXIL [Concomitant]
     Active Substance: PAROXETINE HYDROCHLORIDE
     Indication: PRODUCT USED FOR UNKNOWN INDICATION
  2. TRAMADOL. [Concomitant]
     Active Substance: TRAMADOL
     Indication: PRODUCT USED FOR UNKNOWN INDICATION
  3. ACTEMRA [Suspect]
     Active Substance: TOCILIZUMAB
     Indication: RHEUMATOID ARTHRITIS
     Route: 042
     Dates: start: 20180308, end: 20180829
  4. WELLBUTRIN [Concomitant]
     Active Substance: BUPROPION HYDROCHLORIDE
     Indication: PRODUCT USED FOR UNKNOWN INDICATION
  5. DOMPERIDONE [Concomitant]
     Active Substance: DOMPERIDONE
     Indication: PRODUCT USED FOR UNKNOWN INDICATION
     Dosage: ONGOING, FOR 7 DAYS
     Dates: start: 20190924
  6. ACTEMRA [Suspect]
     Active Substance: TOCILIZUMAB
     Route: 042
     Dates: start: 20180927, end: 20200421
  7. FELODIPINE. [Concomitant]
     Active Substance: FELODIPINE
     Indication: PRODUCT USED FOR UNKNOWN INDICATION
  8. ACTEMRA [Suspect]
     Active Substance: TOCILIZUMAB
     Dosage: ONGOING, ON HOLD DUE TO HOSPITALIZATION FROM FALL/FEMUR FRACTURE
     Route: 042
     Dates: start: 20200519
  9. LANSOPRAZOLE. [Concomitant]
     Active Substance: LANSOPRAZOLE
     Indication: PRODUCT USED FOR UNKNOWN INDICATION
  10. TRAMACET [Concomitant]
     Active Substance: ACETAMINOPHEN\TRAMADOL
     Indication: PRODUCT USED FOR UNKNOWN INDICATION
  11. BUSCOPAN [Concomitant]
     Active Substance: BUTYLSCOPOLAMINE BROMIDE
     Indication: PRODUCT USED FOR UNKNOWN INDICATION
  12. GLICLAZIDE [Concomitant]
     Active Substance: GLICLAZIDE
     Indication: PRODUCT USED FOR UNKNOWN INDICATION
  13. ZOPICLONE [Concomitant]
     Active Substance: ZOPICLONE
     Indication: PRODUCT USED FOR UNKNOWN INDICATION
  14. AVANDIA [Concomitant]
     Active Substance: ROSIGLITAZONE MALEATE
     Indication: PRODUCT USED FOR UNKNOWN INDICATION

REACTIONS (34)
  - Migraine [Unknown]
  - Photophobia [Unknown]
  - Blood pressure systolic increased [Unknown]
  - Contusion [Unknown]
  - Blood pressure diastolic abnormal [Unknown]
  - Femur fracture [Unknown]
  - Abdominal discomfort [Not Recovered/Not Resolved]
  - Disability assessment scale score increased [Unknown]
  - Weight bearing difficulty [Unknown]
  - Dry eye [Not Recovered/Not Resolved]
  - Blood pressure fluctuation [Unknown]
  - Medication error [Unknown]
  - Contusion [Unknown]
  - Obesity [Unknown]
  - Hypertonic bladder [Not Recovered/Not Resolved]
  - Arthralgia [Not Recovered/Not Resolved]
  - Weight decreased [Not Recovered/Not Resolved]
  - Eye irritation [Not Recovered/Not Resolved]
  - Dry eye [Unknown]
  - Urinary tract infection [Unknown]
  - Hip fracture [Unknown]
  - Pain in extremity [Not Recovered/Not Resolved]
  - Skin laceration [Unknown]
  - Oxygen saturation decreased [Unknown]
  - Arthralgia [Not Recovered/Not Resolved]
  - Eye contusion [Unknown]
  - Weight increased [Not Recovered/Not Resolved]
  - Gait disturbance [Unknown]
  - Fall [Unknown]
  - Intraocular pressure increased [Unknown]
  - Pain [Unknown]
  - Off label use [Unknown]
  - Heart rate increased [Unknown]
  - Depression [Unknown]

NARRATIVE: CASE EVENT DATE: 20180308
